FAERS Safety Report 7456061-9 (Version None)
Quarter: 2011Q2

REPORT INFORMATION
  Report Type: 
  Country: None (occurrence: None)
  Receive Date: 20110503
  Receipt Date: 20110430
  Transmission Date: 20111010
  Serious: No
  Sender: FDA-Public Use
  Company Number: US-PFIZER INC-2011093210

PATIENT
  Sex: Female
  Weight: 72.562 kg

DRUGS (4)
  1. NEURONTIN [Concomitant]
     Indication: MIGRAINE
     Dosage: UNK
  2. LEXAPRO [Concomitant]
     Indication: DEPRESSION
     Dosage: UNK
  3. GEODON [Suspect]
     Indication: BIPOLAR DISORDER
     Dosage: 60 MG, DAILY
     Route: 048
     Dates: start: 20110301, end: 20110428
  4. GEODON [Suspect]
     Dosage: 80 MG, 1X/DAY
     Route: 048
     Dates: start: 20110429

REACTIONS (9)
  - JOINT SWELLING [None]
  - PAIN [None]
  - RASH [None]
  - ASTHENIA [None]
  - ERYTHEMA [None]
  - MYALGIA [None]
  - VISION BLURRED [None]
  - URTICARIA [None]
  - ANXIETY [None]
